FAERS Safety Report 4699035-3 (Version None)
Quarter: 2005Q2

REPORT INFORMATION
  Report Type: 
  Country: None (occurrence: None)
  Receive Date: 20050623
  Receipt Date: 20050623
  Transmission Date: 20051028
  Serious: No
  Sender: FDA-Public Use
  Company Number: None

PATIENT
  Age: 68 Year
  Sex: Female
  Weight: 60 kg

DRUGS (2)
  1. NOVOLIN INSULIN [Suspect]
     Indication: DIABETES MELLITUS
     Dosage: 10/30 UNITS    ACS/ACB   SUBCUTANEO
     Route: 058
     Dates: start: 20050608, end: 20050622
  2. REGULAR INSULIN [Suspect]
     Indication: DIABETES MELLITUS
     Dosage: SLIDE SCALE    SUBCUTANEO
     Route: 058
     Dates: start: 20050608, end: 20050622

REACTIONS (1)
  - HYPOGLYCAEMIA [None]
